FAERS Safety Report 10102487 (Version 2)
Quarter: 2014Q2

REPORT INFORMATION
  Report Type: Other
  Country: US (occurrence: US)
  Receive Date: 20140424
  Receipt Date: 20140618
  Transmission Date: 20141212
  Serious: Yes (Hospitalization, Other)
  Sender: FDA-Public Use
  Company Number: US-GSKPPD-2014GSK000254

PATIENT
  Age: 50 Year
  Sex: Male

DRUGS (6)
  1. AVANDIA [Suspect]
     Indication: DIABETES MELLITUS
     Route: 048
     Dates: start: 20030330, end: 20060804
  2. HYDROCHLOROTHIAZIDE [Concomitant]
  3. LISINOPRIL [Concomitant]
  4. NORVASC [Concomitant]
  5. LABETALOL [Concomitant]
  6. ASPIRIN [Concomitant]
     Dosage: TREATMENT MEDICATION
     Dates: start: 20070530

REACTIONS (1)
  - Myocardial infarction [None]
